FAERS Safety Report 16827713 (Version 1)
Quarter: 2019Q3

REPORT INFORMATION
  Report Type: Spontaneous
  Country: ES (occurrence: ES)
  Receive Date: 20190919
  Receipt Date: 20190919
  Transmission Date: 20191005
  Serious: Yes (Other)
  Sender: FDA-Public Use
  Company Number: ES-ASTRAZENECA-2019SF30193

PATIENT
  Age: 61 Year
  Sex: Female

DRUGS (7)
  1. OMEPRAZOL NORMON [Concomitant]
     Route: 048
  2. FOSTER [Concomitant]
     Active Substance: BECLOMETHASONE\FORMOTEROL
     Route: 055
  3. SPIRIVA [Concomitant]
     Active Substance: TIOTROPIUM BROMIDE MONOHYDRATE
     Dosage: 18UG/INHAL DAILY
     Route: 055
  4. FASENRA [Suspect]
     Active Substance: BENRALIZUMAB
     Route: 042
     Dates: start: 20190613, end: 20190806
  5. EUTIROX [Concomitant]
     Active Substance: LEVOTHYROXINE SODIUM
     Dosage: 50UG/INHAL DAILY
     Route: 048
  6. SALBUTAMOL SANDOZ [Concomitant]
     Active Substance: ALBUTEROL
     Route: 055
  7. PREDNISONE CINFA [Concomitant]

REACTIONS (1)
  - Arthralgia [Unknown]

NARRATIVE: CASE EVENT DATE: 201906
